FAERS Safety Report 7682253-X (Version None)
Quarter: 2011Q3

REPORT INFORMATION
  Report Type: 
  Country: None (occurrence: None)
  Receive Date: 20110805
  Receipt Date: 20110726
  Transmission Date: 20111222
  Serious: Yes (Other)
  Sender: FDA-Public Use
  Company Number: 2011SP027373

PATIENT
  Age: 30 Year
  Sex: Female
  Weight: 92 kg

DRUGS (6)
  1. PARGEVERINE HYDROCHLORIDE [Concomitant]
  2. RANITIDINE [Concomitant]
  3. NUVARING [Suspect]
     Indication: CONTRACEPTION
     Dosage: QM;VAG ; QM;VAG
     Route: 067
     Dates: start: 20110516
  4. NUVARING [Suspect]
     Indication: CONTRACEPTION
     Dosage: QM;VAG ; QM;VAG
     Route: 067
     Dates: start: 20100101, end: 20110301
  5. THIETHYLPERAZINE [Concomitant]
  6. MORPHINE [Concomitant]

REACTIONS (9)
  - CHOLELITHIASIS [None]
  - CONFUSIONAL STATE [None]
  - METRORRHAGIA [None]
  - UNEVALUABLE EVENT [None]
  - INCORRECT DRUG ADMINISTRATION DURATION [None]
  - GALLBLADDER DISORDER [None]
  - BLOOD PRESSURE INCREASED [None]
  - LABORATORY TEST ABNORMAL [None]
  - NASOPHARYNGITIS [None]
